FAERS Safety Report 4355923-9 (Version None)
Quarter: 2004Q2

REPORT INFORMATION
  Report Type: 
  Country: None (occurrence: None)
  Receive Date: 20040507
  Receipt Date: 20040419
  Transmission Date: 20050107
  Serious: Yes (Hospitalization, Other)
  Sender: FDA-Public Use
  Company Number: 7872

PATIENT
  Age: 58 Year
  Sex: Male

DRUGS (5)
  1. CYTARABINE [Suspect]
     Indication: ACUTE MYELOID LEUKAEMIA
     Dosage: 200 MG/M2 DAILY IV
     Route: 042
  2. ACYCLOVIR [Suspect]
     Indication: PROPHYLAXIS
  3. FLUCONAZOLE [Suspect]
     Indication: PROPHYLAXIS
  4. IDARUBICIN HCL [Suspect]
     Indication: ACUTE MYELOID LEUKAEMIA
     Dosage: 18 MG/M2 DAILY IV
     Route: 042
  5. LEVOFLOXACIN [Suspect]
     Indication: PROPHYLAXIS

REACTIONS (14)
  - ACIDOSIS [None]
  - ANURIA [None]
  - BLOOD CREATINE INCREASED [None]
  - BONE MARROW DEPRESSION [None]
  - DIARRHOEA [None]
  - FLUID RETENTION [None]
  - GLYCOPEPTIDE ANTIBIOTIC RESISTANT ENTEROCOCCAL INFECTION [None]
  - HAEMODIALYSIS [None]
  - HYPOTENSION [None]
  - HYPOXIA [None]
  - LUNG INFECTION [None]
  - ORAL MUCOSAL DISORDER [None]
  - PCO2 INCREASED [None]
  - PYREXIA [None]
